FAERS Safety Report 16397858 (Version 1)
Quarter: 2019Q2

REPORT INFORMATION
  Report Type: Spontaneous
  Country: US (occurrence: US)
  Receive Date: 20190606
  Receipt Date: 20190606
  Transmission Date: 20190711
  Serious: Yes (Other)
  Sender: FDA-Public Use
  Company Number: PHHY2017US052567

PATIENT
  Age: 6 Year
  Sex: Male

DRUGS (4)
  1. ZOLEDRONIC ACID [Suspect]
     Active Substance: ZOLEDRONIC ACID
     Indication: SOFT TISSUE NEOPLASM
     Dosage: 2.3 MG/M2, QMO
     Route: 065
  2. SIROLIMUS. [Suspect]
     Active Substance: SIROLIMUS
     Indication: SOFT TISSUE NEOPLASM
     Dosage: 3 MG/M2, QMO
     Route: 065
  3. ZOLEDRONIC ACID [Suspect]
     Active Substance: ZOLEDRONIC ACID
     Indication: ANGIOSARCOMA
  4. SIROLIMUS. [Suspect]
     Active Substance: SIROLIMUS
     Indication: ANGIOSARCOMA

REACTIONS (5)
  - Product use in unapproved indication [Unknown]
  - Pyrexia [Recovered/Resolved]
  - Osteomyelitis [Recovered/Resolved]
  - Mucosal inflammation [Recovered/Resolved]
  - Bone pain [Recovered/Resolved]
